FAERS Safety Report 8125898-5 (Version None)
Quarter: 2012Q1

REPORT INFORMATION
  Report Type: 
  Country: None (occurrence: None)
  Receive Date: 20120209
  Receipt Date: 20120130
  Transmission Date: 20120608
  Serious: Yes (Other)
  Sender: FDA-Public Use
  Company Number: BR-ELI_LILLY_AND_COMPANY-BR201201001145

PATIENT
  Sex: Male

DRUGS (2)
  1. HUMULIN R [Suspect]
     Dosage: UNK, UNKNOWN
     Route: 065
  2. HUMULIN N [Suspect]
     Dosage: UNK, UNKNOWN
     Route: 065

REACTIONS (2)
  - PROSTATE CANCER [None]
  - HYPERGLYCAEMIA [None]
